FAERS Safety Report 7462923-9 (Version None)
Quarter: 2011Q2

REPORT INFORMATION
  Report Type: 
  Country: None (occurrence: None)
  Receive Date: 20110506
  Receipt Date: 20110321
  Transmission Date: 20111010
  Serious: Yes (Hospitalization, Other)
  Sender: FDA-Public Use
  Company Number: US-BAYER-201019701NA

PATIENT
  Age: 21 Year
  Sex: Female
  Weight: 104.31 kg

DRUGS (4)
  1. VITAMIN C [Concomitant]
  2. NSAID'S [Concomitant]
  3. YAZ [Suspect]
     Indication: CONTRACEPTION
     Dosage: UNK
     Dates: start: 20080201, end: 20080401
  4. AMOXICILLIN [Concomitant]
     Indication: EAR INFECTION

REACTIONS (3)
  - TRANSIENT ISCHAEMIC ATTACK [None]
  - HEADACHE [None]
  - INTRACRANIAL VENOUS SINUS THROMBOSIS [None]
